FAERS Safety Report 8388710-5 (Version None)
Quarter: 2012Q2

REPORT INFORMATION
  Report Type: 
  Country: None (occurrence: None)
  Receive Date: 20120527
  Receipt Date: 20120515
  Transmission Date: 20120825
  Serious: Yes (Other)
  Sender: FDA-Public Use
  Company Number: FR-BAYER-2012-048953

PATIENT
  Age: 55 Year
  Sex: Female

DRUGS (1)
  1. NAPROXEN SODIUM [Suspect]
     Indication: PERIARTHRITIS
     Dosage: 1 DF UNSPECIFIED FREQUENCY
     Route: 048
     Dates: start: 20111107, end: 20111227

REACTIONS (1)
  - ANAPHYLACTOID REACTION [None]
